FAERS Safety Report 12463298 (Version 1)
Quarter: 2016Q2

REPORT INFORMATION
  Report Type: Spontaneous
  Country: US (occurrence: None)
  Receive Date: 20160613
  Receipt Date: 20160613
  Transmission Date: 20160815
  Serious: Yes (Disabling)
  Sender: FDA-Public Use
  Company Number: None

PATIENT
  Age: 54 Year
  Sex: Female
  Weight: 72.58 kg

DRUGS (5)
  1. VITAMIN E [Concomitant]
     Active Substance: .ALPHA.-TOCOPHEROL
  2. CIPROFLOXIN [Suspect]
     Active Substance: CIPROFLOXACIN
     Indication: SINUSITIS
  3. VITAMIN C [Concomitant]
     Active Substance: ASCORBIC ACID
  4. LEVAQUIN [Suspect]
     Active Substance: LEVOFLOXACIN
     Indication: SINUSITIS
     Route: 048
  5. OMEGA 3S [Concomitant]

REACTIONS (9)
  - Toxicity to various agents [None]
  - Coma [None]
  - Drug ineffective [None]
  - Drug hypersensitivity [None]
  - Seizure [None]
  - Psychotic disorder [None]
  - Hypertension [None]
  - Electrocardiogram abnormal [None]
  - Myocardial infarction [None]
